FAERS Safety Report 20350567 (Version 2)
Quarter: 2022Q1

REPORT INFORMATION
  Report Type: Report from Study
  Country: DE (occurrence: DE)
  Receive Date: 20220119
  Receipt Date: 20220121
  Transmission Date: 20220423
  Serious: Yes (Death, Hospitalization, Other)
  Sender: FDA-Public Use
  Company Number: DE-BRISTOL-MYERS SQUIBB COMPANY-BMS-2022-007376

PATIENT
  Age: 65 Year
  Sex: Male
  Weight: 67.1 kg

DRUGS (2)
  1. NIVOLUMAB [Suspect]
     Active Substance: NIVOLUMAB
     Indication: Small cell lung cancer
     Dosage: 66.5 MG, EVERY 3 WEEKS (1 MG/KG) C1D1
     Route: 065
     Dates: start: 20220104, end: 20220104
  2. IPILIMUMAB [Suspect]
     Active Substance: IPILIMUMAB
     Indication: Small cell lung cancer
     Dosage: 199.5 MG, EVERY 3 WEEKS (3 MG/KG) C1D1
     Route: 065
     Dates: start: 20220104, end: 20220104

REACTIONS (1)
  - Ventricular fibrillation [Fatal]

NARRATIVE: CASE EVENT DATE: 20220113
